FAERS Safety Report 6780341-3 (Version None)
Quarter: 2010Q2

REPORT INFORMATION
  Report Type: 
  Country: None (occurrence: None)
  Receive Date: 20100618
  Receipt Date: 20100610
  Transmission Date: 20101027
  Serious: Yes (Hospitalization)
  Sender: FDA-Public Use
  Company Number: US-ABBOTT-10P-163-0650471-00

PATIENT
  Age: 37 Year
  Sex: Female

DRUGS (6)
  1. NORVIR [Suspect]
     Indication: HIV INFECTION
  2. REYATAZ [Suspect]
     Indication: HIV INFECTION
  3. TRUVADA [Suspect]
     Indication: HIV INFECTION
  4. ABILIFY [Concomitant]
     Indication: DRUG USE FOR UNKNOWN INDICATION
  5. CELEXA [Concomitant]
     Indication: DRUG USE FOR UNKNOWN INDICATION
  6. ALBUTEROL [Concomitant]
     Indication: DRUG USE FOR UNKNOWN INDICATION

REACTIONS (2)
  - IMMUNE RECONSTITUTION SYNDROME [None]
  - PULMONARY SARCOIDOSIS [None]
